FAERS Safety Report 4495925-5 (Version None)
Quarter: 2004Q3

REPORT INFORMATION
  Report Type: 
  Country: None (occurrence: None)
  Receive Date: 20040927
  Receipt Date: 20040521
  Transmission Date: 20050211
  Serious: No
  Sender: FDA-Public Use
  Company Number: USA040568333

PATIENT
  Age: 11 Year
  Sex: Male
  Weight: 39 kg

DRUGS (1)
  1. STRATTERA [Suspect]
     Indication: ATTENTION DEFICIT/HYPERACTIVITY DISORDER
     Dosage: 60 MG DAY
     Dates: start: 20030501, end: 20040501

REACTIONS (5)
  - DISTURBANCE IN ATTENTION [None]
  - INITIAL INSOMNIA [None]
  - NAUSEA [None]
  - PRESCRIBED OVERDOSE [None]
  - SOMNOLENCE [None]
